FAERS Safety Report 20852935 (Version 3)
Quarter: 2022Q3

REPORT INFORMATION
  Report Type: Spontaneous
  Country: US (occurrence: US)
  Receive Date: 20220520
  Receipt Date: 20220712
  Transmission Date: 20221027
  Serious: No
  Sender: FDA-Public Use
  Company Number: US-MYLANLABS-2022M1035215

PATIENT
  Sex: Male

DRUGS (12)
  1. FENTANYL TRANSDERMAL SYSTEM [Suspect]
     Active Substance: FENTANYL
     Indication: Back pain
     Dosage: 37.5 MICROGRAM, QH
     Route: 062
     Dates: start: 2018
  2. LISINOPRIL AND HYDROCHLOROTHIAZIDE [Suspect]
     Active Substance: HYDROCHLOROTHIAZIDE\LISINOPRIL
     Indication: Product used for unknown indication
     Dosage: 30 MG ONCE A DAY
     Route: 065
  3. XANAX [Suspect]
     Active Substance: ALPRAZOLAM
     Indication: Hypotonia
     Dosage: 0.25MCG 2X A DAY AS NEEDED
     Route: 065
  4. AMITRIPTYLINE [Concomitant]
     Active Substance: AMITRIPTYLINE
     Dosage: 75 MG AT NIGHT
     Route: 065
  5. CELEBREX [Concomitant]
     Active Substance: CELECOXIB
     Dosage: 200MG 2X A DAY
     Route: 065
  6. DULOXETINE [Concomitant]
     Active Substance: DULOXETINE
     Dosage: ONCE A DAY
     Route: 065
  7. ESOMEPRAZOLE [Concomitant]
     Active Substance: ESOMEPRAZOLE
     Dosage: 40 MG ONCE A DAY
     Route: 065
  8. LEVOTHYROXINE [Concomitant]
     Active Substance: LEVOTHYROXINE
     Indication: Hypothyroidism
     Dosage: 125 ONCE DAILY
     Route: 065
  9. OXCARBAZEPINE [Concomitant]
     Active Substance: OXCARBAZEPINE
     Indication: Affective disorder
     Dosage: 600MG 3X A DAY
     Route: 065
  10. PREGABALIN [Concomitant]
     Active Substance: PREGABALIN
     Dosage: 200MG 2X A DAY
     Route: 065
  11. TIZANIDINE [Concomitant]
     Active Substance: TIZANIDINE
     Dosage: 3X AS NEEDED
     Route: 065
  12. MELATONIN [Concomitant]
     Active Substance: MELATONIN
     Indication: Insomnia
     Dosage: 2.5MG 4 TAB
     Route: 065

REACTIONS (13)
  - Nausea [Recovering/Resolving]
  - Vomiting [Recovering/Resolving]
  - Withdrawal syndrome [Unknown]
  - Drug level decreased [Unknown]
  - Drug ineffective [Unknown]
  - Dehydration [Unknown]
  - Dizziness [Unknown]
  - Dyspnoea [Unknown]
  - Blood pressure increased [Unknown]
  - Restlessness [Unknown]
  - Dyskinesia [Unknown]
  - Confusional state [Unknown]
  - Tremor [Unknown]
